FAERS Safety Report 6250146-0 (Version None)
Quarter: 2009Q2

REPORT INFORMATION
  Report Type: 
  Country: None (occurrence: None)
  Receive Date: 20090626
  Receipt Date: 20090623
  Transmission Date: 20091009
  Serious: Yes (Death)
  Sender: FDA-Public Use
  Company Number: 2009US001372

PATIENT
  Age: 40 Year
  Sex: Male

DRUGS (19)
  1. PROGRAF [Suspect]
     Indication: RENAL AND PANCREAS TRANSPLANT
     Dosage: 1 MG, BID, ORAL ; 2 MG, BID, ORAL ; 0.5 MG, BID
     Route: 048
     Dates: start: 20080601
  2. PROGRAF [Suspect]
     Indication: RENAL AND PANCREAS TRANSPLANT
     Dosage: 1 MG, BID, ORAL ; 2 MG, BID, ORAL ; 0.5 MG, BID
     Route: 048
     Dates: start: 20090309
  3. RAPAMUNE [Concomitant]
  4. PREDNISONE TAB [Concomitant]
  5. MULTIVITAMIN [Concomitant]
  6. ZOFRAN [Concomitant]
  7. DARVOCET-N (DEXTROPROPOXYPHENE NAPSILATE) [Concomitant]
  8. VITAMIN D NOS (VITAMIN D NOS) [Concomitant]
  9. NORVASC [Concomitant]
  10. ZOLOFT [Concomitant]
  11. SODIUM BICARBONATE IN PLASTIC CONTAINER [Concomitant]
  12. CARAFATE [Concomitant]
  13. TOPROL-XL [Concomitant]
  14. ASACOL [Concomitant]
  15. PRILOSEC [Concomitant]
  16. ASPIRIN [Concomitant]
  17. EPOGEN [Concomitant]
  18. BACTRIM DS [Concomitant]
  19. IMODIUM [Concomitant]

REACTIONS (1)
  - DEATH [None]
